FAERS Safety Report 23822903 (Version 1)
Quarter: 2024Q2

REPORT INFORMATION
  Report Type: Report from Study
  Country: US (occurrence: US)
  Receive Date: 20240506
  Receipt Date: 20240506
  Transmission Date: 20240716
  Serious: Yes (Other)
  Sender: FDA-Public Use
  Company Number: US-JNJFOC-20240484593

PATIENT
  Age: 57 Year
  Sex: Male

DRUGS (1)
  1. SPRAVATO [Suspect]
     Active Substance: ESKETAMINE
     Indication: Depression
     Dosage: ^56 MG, 1 TOTAL DOSE^?RECENT DOSE WAS ADMINISTERED ON 27-APR-2024.
     Dates: start: 20240425, end: 20240425

REACTIONS (4)
  - Hallucination [Unknown]
  - Dissociation [Unknown]
  - Thinking abnormal [Unknown]
  - Feeling abnormal [Unknown]

NARRATIVE: CASE EVENT DATE: 20240425
